FAERS Safety Report 9998205 (Version 3)
Quarter: 2014Q2

REPORT INFORMATION
  Report Type: Spontaneous
  Country: GB (occurrence: GB)
  Receive Date: 20140311
  Receipt Date: 20140617
  Transmission Date: 20141212
  Serious: Yes (Other)
  Sender: FDA-Public Use
  Company Number: CHPA2014GB003636

PATIENT
  Age: 22 Year
  Sex: Female

DRUGS (3)
  1. OTRIVIN [Suspect]
     Indication: NASOPHARYNGITIS
     Dosage: 1 DF, BID
     Route: 065
     Dates: start: 201107
  2. OTRIVIN [Suspect]
     Indication: OFF LABEL USE
     Dosage: 1 DF, 6-8 TIMES A DAY
  3. RIGEVIDON [Concomitant]
     Dosage: UNK
     Dates: start: 20140124

REACTIONS (6)
  - Drug dependence [Unknown]
  - Nasal congestion [Unknown]
  - Panic reaction [Unknown]
  - Insomnia [Unknown]
  - Rebound effect [Unknown]
  - Incorrect dosage administered [Unknown]
